FAERS Safety Report 24837398 (Version 1)
Quarter: 2025Q1

REPORT INFORMATION
  Report Type: Spontaneous
  Country: IT (occurrence: IT)
  Receive Date: 20250113
  Receipt Date: 20250113
  Transmission Date: 20250409
  Serious: Yes (Hospitalization)
  Sender: MYLAN
  Company Number: None

PATIENT
  Age: 88 Year
  Sex: Male

DRUGS (3)
  1. ALPRAZOLAM [Suspect]
     Active Substance: ALPRAZOLAM
     Indication: Agitation
     Dosage: QD (ALPRAZOLAM GTT IN THE EVENING)
     Route: 048
     Dates: start: 20241223, end: 20241228
  2. EDOXABAN TOSYLATE [Concomitant]
     Active Substance: EDOXABAN TOSYLATE
     Indication: Atrial fibrillation
     Dosage: 60 MILLIGRAM, QD (4PM)
     Route: 048
  3. UROMEN [Concomitant]
     Indication: Benign prostatic hyperplasia
     Dosage: 0.4 MILLIGRAM, QD (12PM)
     Route: 048

REACTIONS (2)
  - Sopor [Recovering/Resolving]
  - Urine odour abnormal [Recovering/Resolving]

NARRATIVE: CASE EVENT DATE: 20241228
